FAERS Safety Report 17850901 (Version 1)
Quarter: 2020Q2

REPORT INFORMATION
  Report Type: Spontaneous
  Country: US (occurrence: US)
  Receive Date: 20200602
  Receipt Date: 20200602
  Transmission Date: 20200714
  Serious: No
  Sender: FDA-Public Use
  Company Number: None

PATIENT
  Age: 79 Year
  Sex: Female
  Weight: 164.5 kg

DRUGS (18)
  1. GABAPENTIN 300MG PO BID [Concomitant]
     Dates: start: 20200525, end: 20200526
  2. REMDESIVIR. [Suspect]
     Active Substance: REMDESIVIR
     Indication: COVID-19
     Dosage: ?          OTHER FREQUENCY:ONCE;?
     Route: 042
     Dates: start: 20200526, end: 20200527
  3. FAMOTIDINE 40MG PO DAILY [Concomitant]
     Dates: start: 20200525
  4. LISINOPRIL 10MG PO DAILY [Concomitant]
     Dates: start: 20200525, end: 20200526
  5. PANTOPRAZOLE 40MG PO DAILY [Concomitant]
     Dates: start: 20200525
  6. ACETAMINOPHEN 650MG PO Q6H PRN FEVER [Concomitant]
     Dates: start: 20200525
  7. GUAIFENESIN 200MG PO Q4H PRN COUGH [Concomitant]
     Dates: start: 20200525
  8. ALLOPURINOL 100MG PO DAILY [Concomitant]
     Dates: start: 20200525
  9. BUMETANIDE 1MG PO DAILY [Concomitant]
     Dates: start: 20200525
  10. FERROUS SULFATE 325MG PO BID [Concomitant]
     Dates: start: 20200525
  11. LEVOTHYROXINE 100 MCG PO DAILY [Concomitant]
     Dates: start: 20200525
  12. ALBUTEROL HFA [Concomitant]
     Active Substance: ALBUTEROL SULFATE
     Dates: start: 20200525
  13. ASCORBIC ACID 250MG PO DAILY [Concomitant]
     Dates: start: 20200525
  14. ASPIRIN EC 81MG PO DAILY [Concomitant]
     Dates: start: 20200525
  15. APIXABAN 5MG PO BID [Concomitant]
     Dates: start: 20200525
  16. LIDOCAINE 5% PATCH TD DAILY [Concomitant]
     Dates: start: 20200525
  17. MULTIVITAMIN 1 TABLET PO DAILY [Concomitant]
     Dates: start: 20200525
  18. IOHEXOL 350MG IODINE/ML INJ: DOSE=75ML ONCE [Concomitant]
     Dates: start: 20200525, end: 20200525

REACTIONS (1)
  - Blood creatinine increased [None]

NARRATIVE: CASE EVENT DATE: 20200527
